FAERS Safety Report 8062852-6 (Version None)
Quarter: 2012Q1

REPORT INFORMATION
  Report Type: 
  Country: None (occurrence: None)
  Receive Date: 20120123
  Receipt Date: 20120113
  Transmission Date: 20120608
  Serious: Yes (Other)
  Sender: FDA-Public Use
  Company Number: FR-SANOFI-AVENTIS-2012SA002478

PATIENT
  Age: 74 Year
  Sex: Male

DRUGS (3)
  1. PLAVIX [Suspect]
     Route: 048
     Dates: start: 20110701
  2. CLOPIDOGREL [Suspect]
     Indication: ATHEROSCLEROSIS PROPHYLAXIS
     Route: 048
     Dates: start: 20091024, end: 20110627
  3. PLAVIX [Suspect]
     Indication: ATHEROSCLEROSIS PROPHYLAXIS
     Route: 048
     Dates: end: 20091024

REACTIONS (2)
  - DRUG INEFFECTIVE [None]
  - MALABSORPTION [None]
